FAERS Safety Report 13058337 (Version 2)
Quarter: 2017Q1

REPORT INFORMATION
  Report Type: Report from Study
  Country: BR (occurrence: BR)
  Receive Date: 20161223
  Receipt Date: 20170125
  Transmission Date: 20170428
  Serious: Yes (Death, Hospitalization)
  Sender: FDA-Public Use
  Company Number: PHHY2016BR172469

PATIENT
  Sex: Male
  Weight: 84 kg

DRUGS (1)
  1. EXJADE [Suspect]
     Active Substance: DEFERASIROX
     Indication: ANAEMIA
     Dosage: 1500 MG, QD
     Route: 048
     Dates: start: 201607

REACTIONS (9)
  - Kidney infection [Fatal]
  - Urinary tract infection [Fatal]
  - Swelling [Unknown]
  - Acute myeloid leukaemia [Fatal]
  - Malaise [Unknown]
  - Nosocomial infection [Fatal]
  - Malignant neoplasm progression [Fatal]
  - Septic shock [Fatal]
  - Hernia perforation [Unknown]
